FAERS Safety Report 8350500-7 (Version None)
Quarter: 2012Q2

REPORT INFORMATION
  Report Type: 
  Country: None (occurrence: None)
  Receive Date: 20120510
  Receipt Date: 20120508
  Transmission Date: 20120825
  Serious: Yes (Death, Hospitalization, Disabling)
  Sender: FDA-Public Use
  Company Number: FR-TEVA-334798USA

PATIENT
  Sex: Male

DRUGS (6)
  1. BORTEZOMIB [Suspect]
     Dosage: .3467 MILLIGRAM;
     Dates: start: 20111010, end: 20111114
  2. BORTEZOMIB [Suspect]
     Dosage: .2933 MILLIGRAM;
     Dates: start: 20111117, end: 20111215
  3. THALIDOMIDE [Suspect]
     Route: 048
     Dates: start: 20061101, end: 20070701
  4. REVLIMID [Suspect]
     Route: 048
     Dates: start: 20071201, end: 20120301
  5. BORTEZOMIB [Suspect]
     Indication: MULTIPLE MYELOMA
     Dosage: .2933 MILLIGRAM;
     Dates: start: 20111010, end: 20111215
  6. TREANDA [Suspect]
     Indication: MULTIPLE MYELOMA
     Route: 042
     Dates: start: 20090831, end: 20110531

REACTIONS (2)
  - SALMONELLA SEPSIS [None]
  - PROGRESSIVE MULTIFOCAL LEUKOENCEPHALOPATHY [None]
